FAERS Safety Report 7322130-7 (Version None)
Quarter: 2011Q1

REPORT INFORMATION
  Report Type: 
  Country: None (occurrence: None)
  Receive Date: 20110228
  Receipt Date: 20110221
  Transmission Date: 20110831
  Serious: Yes (Life-Threatening, Hospitalization)
  Sender: FDA-Public Use
  Company Number: US-RB-022733-11

PATIENT
  Age: 40 Year
  Sex: Male

DRUGS (1)
  1. SUBOXONE [Suspect]
     Indication: DRUG DEPENDENCE
     Route: 060
     Dates: start: 20100101, end: 20110201

REACTIONS (4)
  - STAPHYLOCOCCAL INFECTION [None]
  - BRAIN ABSCESS [None]
  - MITRAL VALVE PROLAPSE [None]
  - ALTERED STATE OF CONSCIOUSNESS [None]
